FAERS Safety Report 18749412 (Version 2)
Quarter: 2021Q1

REPORT INFORMATION
  Report Type: Spontaneous
  Country: BR (occurrence: BR)
  Receive Date: 20210116
  Receipt Date: 20210208
  Transmission Date: 20210419
  Serious: Yes (Life-Threatening, Other)
  Sender: FDA-Public Use
  Company Number: NVSC2021BR009415

PATIENT
  Sex: Female

DRUGS (1)
  1. ESTRADOT [Suspect]
     Active Substance: ESTRADIOL
     Indication: PRODUCT USED FOR UNKNOWN INDICATION
     Dosage: UNK
     Route: 065

REACTIONS (7)
  - Poor quality sleep [Unknown]
  - Feeling abnormal [Unknown]
  - Temperature intolerance [Unknown]
  - Drug dependence [Unknown]
  - Hot flush [Unknown]
  - Fear of death [Unknown]
  - Product availability issue [Unknown]
